FAERS Safety Report 5871422-7 (Version None)
Quarter: 2008Q3

REPORT INFORMATION
  Report Type: 
  Country: None (occurrence: None)
  Receive Date: 20080905
  Receipt Date: 20080828
  Transmission Date: 20090109
  Serious: Yes (Other)
  Sender: FDA-Public Use
  Company Number: PHHY2008JP18922

PATIENT
  Age: 27 Year
  Sex: Male

DRUGS (1)
  1. PARLODEL [Suspect]
     Dosage: UNK
     Route: 048
     Dates: start: 20080820, end: 20080820

REACTIONS (4)
  - BLOOD PRESSURE DECREASED [None]
  - BRADYCARDIA [None]
  - FALL [None]
  - LOSS OF CONSCIOUSNESS [None]
